FAERS Safety Report 22005171 (Version 6)
Quarter: 2024Q1

REPORT INFORMATION
  Report Type: Spontaneous
  Country: US (occurrence: US)
  Receive Date: 20230217
  Receipt Date: 20240316
  Transmission Date: 20240410
  Serious: Yes (Hospitalization, Other)
  Sender: FDA-Public Use
  Company Number: US-UNITED THERAPEUTICS-UNT-2023-003451

PATIENT
  Age: 57 Year
  Sex: Female
  Weight: 43.084 kg

DRUGS (36)
  1. ORENITRAM [Suspect]
     Active Substance: TREPROSTINIL
     Indication: Pulmonary arterial hypertension
     Dosage: 10 MG, Q8H
     Route: 048
  2. ORENITRAM [Suspect]
     Active Substance: TREPROSTINIL
     Dosage: 9 MG, Q8H
     Route: 048
     Dates: end: 20230215
  3. ORENITRAM [Suspect]
     Active Substance: TREPROSTINIL
     Dosage: 8 MG (2 TABLET OF 0.25 MG AND 1 TABLET OF 5 MG AND 2.5 MG EACH), TID
     Route: 048
     Dates: start: 20230215
  4. ORENITRAM [Suspect]
     Active Substance: TREPROSTINIL
     Dosage: 9 MG, TID
     Route: 048
  5. ORENITRAM [Suspect]
     Active Substance: TREPROSTINIL
     Dosage: 6 MG, TID
     Route: 048
     Dates: start: 20240119, end: 20240205
  6. ORENITRAM [Suspect]
     Active Substance: TREPROSTINIL
     Dosage: 1 MG, TID
     Route: 048
     Dates: start: 20240118, end: 20240119
  7. ORENITRAM [Suspect]
     Active Substance: TREPROSTINIL
     Dosage: UNK
     Route: 048
     Dates: start: 20181207
  8. ORENITRAM [Suspect]
     Active Substance: TREPROSTINIL
     Indication: Pulmonary arterial hypertension
     Dosage: UNK
     Route: 048
  9. ORENITRAM [Suspect]
     Active Substance: TREPROSTINIL
     Dosage: UNK
     Route: 048
  10. ORENITRAM [Suspect]
     Active Substance: TREPROSTINIL
     Indication: Pulmonary arterial hypertension
     Dosage: UNK
     Route: 048
  11. ORENITRAM [Suspect]
     Active Substance: TREPROSTINIL
     Indication: Pulmonary arterial hypertension
     Dosage: UNK
     Route: 048
  12. ORENITRAM [Suspect]
     Active Substance: TREPROSTINIL
     Dosage: UNK
     Route: 048
  13. ORENITRAM [Suspect]
     Active Substance: TREPROSTINIL
     Indication: Pulmonary arterial hypertension
     Dosage: UNK
     Route: 048
  14. ORENITRAM [Suspect]
     Active Substance: TREPROSTINIL
     Dosage: UNK
     Route: 048
  15. ADCIRCA [Suspect]
     Active Substance: TADALAFIL
     Indication: Product used for unknown indication
     Dosage: 20 MG, DAILY
     Route: 048
     Dates: start: 20240105, end: 20240119
  16. OPSUMIT [Suspect]
     Active Substance: MACITENTAN
     Indication: Product used for unknown indication
     Dosage: UNK
     Route: 065
     Dates: end: 20230215
  17. LASIX [Suspect]
     Active Substance: FUROSEMIDE
     Indication: Product used for unknown indication
     Dosage: 20 MG, BID
     Route: 065
  18. FERROUS SULFATE [Suspect]
     Active Substance: FERROUS SULFATE
     Indication: Product used for unknown indication
     Dosage: 1 TABLET OF 324 (65 FE) MG, BID
     Route: 048
     Dates: start: 20240106
  19. ALDACTONE [Suspect]
     Active Substance: SPIRONOLACTONE
     Indication: Product used for unknown indication
     Dosage: 25 MG, DAILY
     Route: 048
  20. MIDODRINE [Suspect]
     Active Substance: MIDODRINE
     Indication: Product used for unknown indication
     Dosage: UNK
     Route: 065
  21. ALBUMIN HUMAN [Suspect]
     Active Substance: ALBUMIN HUMAN
     Indication: Product used for unknown indication
     Route: 065
  22. VITAMIN B12 [Concomitant]
     Active Substance: CYANOCOBALAMIN
     Indication: Product used for unknown indication
     Dosage: UNK
     Route: 065
  23. PRILOSEC [Concomitant]
     Active Substance: OMEPRAZOLE MAGNESIUM
     Indication: Product used for unknown indication
     Dosage: 40 MG (1 TABLET OF 40 MG IN THE MORNING AND EVENING EACH), BID
     Route: 048
  24. IMODIUM AD [Concomitant]
     Active Substance: LOPERAMIDE HYDROCHLORIDE
     Indication: Product used for unknown indication
     Dosage: UNK
     Route: 065
  25. FOLATE SODIUM [Concomitant]
     Active Substance: FOLATE SODIUM
     Indication: Product used for unknown indication
     Dosage: 400 MCG, DAILY
     Route: 048
  26. PEPCID AC [Concomitant]
     Active Substance: FAMOTIDINE
     Indication: Product used for unknown indication
     Dosage: UNK
     Route: 065
  27. POTASSIUM CHLORIDE [Concomitant]
     Active Substance: POTASSIUM CHLORIDE
     Indication: Product used for unknown indication
     Dosage: UNK
     Route: 065
  28. REVATIO [Concomitant]
     Active Substance: SILDENAFIL CITRATE
     Indication: Pulmonary arterial hypertension
     Dosage: 20 MG, Q8H
     Route: 048
     Dates: start: 20240119, end: 20240131
  29. ZOFRAN [Concomitant]
     Active Substance: ONDANSETRON HYDROCHLORIDE
     Indication: Nausea
     Dosage: 4 MG ( 1 TABLET OF 4 MG IN THE MORNING, AFTERNOON AND EVENING)), TID
     Route: 060
     Dates: start: 20231228, end: 20240119
  30. MONODOX [Concomitant]
     Active Substance: DOXYCYCLINE
     Indication: Product used for unknown indication
     Dosage: 100 MG (1 CAPSULE OF 100 MG IN THE MORNING AND EVENING EACH), BID
     Route: 048
     Dates: start: 20240103, end: 20240119
  31. BENTYL [Concomitant]
     Active Substance: DICYCLOMINE HYDROCHLORIDE
     Indication: Product used for unknown indication
     Dosage: 10 MG, QID
     Route: 048
     Dates: start: 20240119
  32. PROTONIX [Concomitant]
     Active Substance: PANTOPRAZOLE SODIUM
     Indication: Product used for unknown indication
     Dosage: 40 MG, BID
     Route: 048
     Dates: start: 20240119, end: 20240130
  33. CARAFATE [Concomitant]
     Active Substance: SUCRALFATE
     Indication: Product used for unknown indication
     Dosage: 1 MG, QID
     Route: 048
     Dates: start: 20240119, end: 20240218
  34. LIPITOR [Concomitant]
     Active Substance: ATORVASTATIN CALCIUM
     Indication: Product used for unknown indication
     Dosage: 20 MG, DAILY
     Route: 048
  35. QUESTRAN [Concomitant]
     Active Substance: CHOLESTYRAMINE
     Indication: Product used for unknown indication
     Dosage: 4 MG, BID
     Route: 048
     Dates: start: 20240106
  36. LEVSIN [Concomitant]
     Active Substance: HYOSCYAMINE SULFATE
     Indication: Abdominal pain
     Dosage: 0.125 MG, QID
     Route: 048
     Dates: start: 20231229

REACTIONS (52)
  - Pancytopenia [Not Recovered/Not Resolved]
  - Pericardial effusion [Unknown]
  - Pulmonary oedema [Unknown]
  - Ascites [Not Recovered/Not Resolved]
  - Scleroderma [Not Recovered/Not Resolved]
  - Pulmonary hypertension [Unknown]
  - Gastrointestinal disorder [Not Recovered/Not Resolved]
  - Hepatic function abnormal [Not Recovered/Not Resolved]
  - Portal hypertensive gastropathy [Unknown]
  - Cardiac failure congestive [Unknown]
  - Portal fibrosis [Unknown]
  - Portal tract inflammation [Unknown]
  - Acute kidney injury [Unknown]
  - Mallory-Weiss syndrome [Unknown]
  - Colitis [Unknown]
  - Hepatic cirrhosis [Recovered/Resolved]
  - Interstitial lung disease [Unknown]
  - Systemic scleroderma [Unknown]
  - Cachexia [Unknown]
  - Rheumatoid arthritis [Unknown]
  - Cardiac cirrhosis [Unknown]
  - Haematemesis [Recovered/Resolved]
  - Hyperlipidaemia [Unknown]
  - Dyspnoea exertional [Recovering/Resolving]
  - Varices oesophageal [Unknown]
  - Abdominal pain [Not Recovered/Not Resolved]
  - Abdominal distension [Unknown]
  - Oxygen saturation decreased [Unknown]
  - Hypovolaemia [Unknown]
  - Hyperplasia of thymic epithelium [Unknown]
  - Duodenitis [Unknown]
  - Occult blood positive [Unknown]
  - Focal nodular hyperplasia [Unknown]
  - Diarrhoea [Recovered/Resolved]
  - Lipase increased [Unknown]
  - Cholelithiasis [Unknown]
  - Overlap syndrome [Unknown]
  - Atelectasis [Unknown]
  - Splenomegaly [Unknown]
  - Retroperitoneal lymphadenopathy [Unknown]
  - Gastrointestinal wall thickening [Unknown]
  - Mediastinal disorder [Unknown]
  - Blood immunoglobulin G increased [Unknown]
  - Aneurysm [Unknown]
  - Blood creatinine increased [Unknown]
  - Hypersplenism [Unknown]
  - Drug intolerance [Unknown]
  - Hypotension [Recovered/Resolved]
  - Gastrointestinal pain [Unknown]
  - Fatigue [Unknown]
  - Asthenia [Unknown]
  - Troponin increased [Unknown]

NARRATIVE: CASE EVENT DATE: 20181212
